FAERS Safety Report 16127215 (Version 2)
Quarter: 2019Q2

REPORT INFORMATION
  Report Type: Spontaneous
  Country: NO (occurrence: NO)
  Receive Date: 20190328
  Receipt Date: 20190403
  Transmission Date: 20190711
  Serious: Yes (Other)
  Sender: FDA-Public Use
  Company Number: PHHY2019NO066019

PATIENT
  Age: 14 Year
  Sex: Male

DRUGS (2)
  1. CYTARABINE. [Concomitant]
     Active Substance: CYTARABINE
     Indication: ACUTE LYMPHOCYTIC LEUKAEMIA
     Route: 037
  2. METHOTREXATE. [Suspect]
     Active Substance: METHOTREXATE
     Indication: ACUTE LYMPHOCYTIC LEUKAEMIA
     Dosage: 240 MG, UNK
     Route: 037

REACTIONS (16)
  - Somnolence [Unknown]
  - Amnesia [Unknown]
  - Neck pain [Unknown]
  - Subdural haematoma [Unknown]
  - Pain [Unknown]
  - Back pain [Unknown]
  - Product preparation error [Unknown]
  - Neurotoxicity [Unknown]
  - Seizure [Unknown]
  - Confusional state [Unknown]
  - Pyrexia [Recovered/Resolved]
  - Overdose [Unknown]
  - Arachnoiditis [Unknown]
  - Pyrexia [Unknown]
  - Headache [Unknown]
  - Medication error [Unknown]
